FAERS Safety Report 24248393 (Version 1)
Quarter: 2024Q3

REPORT INFORMATION
  Report Type: Spontaneous
  Country: US (occurrence: US)
  Receive Date: 20240826
  Receipt Date: 20240826
  Transmission Date: 20241016
  Serious: Yes (Hospitalization, Other)
  Sender: MACLEODS
  Company Number: US-MACLEODS PHARMA-MAC2024048925

PATIENT
  Age: 34 Year
  Sex: Female

DRUGS (2)
  1. METHIMAZOLE [Suspect]
     Active Substance: METHIMAZOLE
     Indication: Graves^ disease
     Route: 065
     Dates: start: 198205
  2. METHOHEXITAL [Concomitant]
     Active Substance: METHOHEXITAL
     Indication: Abortion
     Route: 042

REACTIONS (5)
  - Aplastic anaemia [Recovered/Resolved]
  - Pancytopenia [Recovered/Resolved]
  - Hyperthyroidism [Recovered/Resolved]
  - Klebsiella sepsis [Recovered/Resolved]
  - Bone marrow failure [Recovered/Resolved]
